FAERS Safety Report 6644284-8 (Version None)
Quarter: 2010Q1

REPORT INFORMATION
  Report Type: 
  Country: None (occurrence: None)
  Receive Date: 20100319
  Receipt Date: 20100319
  Transmission Date: 20100710
  Serious: Yes (Hospitalization)
  Sender: FDA-Public Use
  Company Number: None

PATIENT
  Age: 81 Year
  Sex: Male
  Weight: 60.1 kg

DRUGS (18)
  1. COUMADIN [Suspect]
     Indication: ATRIAL FIBRILLATION
     Dosage: 1 MG DAILY PO, CHRONIC
     Route: 048
  2. ASPIRIN [Suspect]
     Indication: CORONARY ARTERY DISEASE
     Dosage: 81 MG DAILY PO, CHRONIC
     Route: 048
  3. FOSAMAX [Concomitant]
  4. PRILOSEC [Concomitant]
  5. PREDNISONE TAB [Concomitant]
  6. LASIX [Concomitant]
  7. IMDUR [Concomitant]
  8. TRICOR [Concomitant]
  9. PROPAFENONE HCL [Concomitant]
  10. POTASSIUM CHLORIDE [Concomitant]
  11. ALBUTEROL [Concomitant]
  12. SYMBICORT [Concomitant]
  13. LOMOTIL [Concomitant]
  14. METOLAZONE [Concomitant]
  15. MESALAMINE [Concomitant]
  16. ENTOCORT EC [Concomitant]
  17. CALCIUM + D [Concomitant]
  18. ZINC [Concomitant]

REACTIONS (6)
  - DIVERTICULUM [None]
  - DRUG LEVEL ABOVE THERAPEUTIC [None]
  - GASTROINTESTINAL HAEMORRHAGE [None]
  - HIATUS HERNIA [None]
  - OESOPHAGEAL DISORDER [None]
  - OESOPHAGITIS [None]
